FAERS Safety Report 23261181 (Version 3)
Quarter: 2024Q1

REPORT INFORMATION
  Report Type: Report from Study
  Country: IE (occurrence: IE)
  Receive Date: 20231205
  Receipt Date: 20240225
  Transmission Date: 20240410
  Serious: No
  Sender: FDA-Public Use
  Company Number: IE-JNJFOC-20231132716

PATIENT
  Sex: Male

DRUGS (2)
  1. STELARA [Suspect]
     Active Substance: USTEKINUMAB
     Indication: Product used for unknown indication
     Route: 058
  2. STELARA [Suspect]
     Active Substance: USTEKINUMAB

REACTIONS (2)
  - Device defective [Unknown]
  - Product dose omission issue [Unknown]
